FAERS Safety Report 23530586 (Version 5)
Quarter: 2025Q1

REPORT INFORMATION
  Report Type: Spontaneous
  Country: PK (occurrence: PK)
  Receive Date: 20240216
  Receipt Date: 20250113
  Transmission Date: 20250409
  Serious: Yes (Hospitalization)
  Sender: AMGEN
  Company Number: PK-PFIZER INC-2021635876

PATIENT
  Age: 43 Year
  Sex: Male

DRUGS (35)
  1. ENBREL [Suspect]
     Active Substance: ETANERCEPT
     Indication: Rheumatoid arthritis
     Dosage: 50 MG, WEEKLY
     Route: 058
  2. ENBREL [Suspect]
     Active Substance: ETANERCEPT
     Route: 065
     Dates: start: 20210604
  3. ENBREL [Suspect]
     Active Substance: ETANERCEPT
     Route: 058
     Dates: start: 202106
  4. ENBREL [Suspect]
     Active Substance: ETANERCEPT
     Route: 058
     Dates: start: 20211030
  5. ENBREL [Suspect]
     Active Substance: ETANERCEPT
     Route: 058
     Dates: start: 20211130
  6. LEFLUNOMIDE [Concomitant]
     Active Substance: LEFLUNOMIDE
     Dosage: 20 MG, DAILY
  7. LEFLUNOMIDE [Concomitant]
     Active Substance: LEFLUNOMIDE
     Dosage: 20 MG, 1 + 0 + 0 + 0, AFTER MEAL
  8. LEFLUNOMIDE [Concomitant]
     Active Substance: LEFLUNOMIDE
     Dosage: 20 MG, DAILY(FOR 7 DAYS IF SYMPTOMS REOCCUR THEN DECREASE LEF TO 10 MG/DAY)
  9. LEFLUNOMIDE [Concomitant]
     Active Substance: LEFLUNOMIDE
     Dosage: 10 MG, DAILY
  10. LEFLUNOMIDE [Concomitant]
     Active Substance: LEFLUNOMIDE
     Dosage: 20 MG, DAILY
  11. LEFLUNOMIDE [Concomitant]
     Active Substance: LEFLUNOMIDE
     Dosage: 10 MG, (1 + 0 + 0 + 0) 1 TAB IN MORNING
  12. LEFLUNOMIDE [Concomitant]
     Active Substance: LEFLUNOMIDE
     Dosage: 10 MG, DAILY
  13. LEFLUNOMIDE [Concomitant]
     Active Substance: LEFLUNOMIDE
     Dosage: 10 MG, (1 + 0 + 0 + 0) 1 TAB IN MORNING
  14. HYDROXYCHLOROQUINE SULFATE [Concomitant]
     Active Substance: HYDROXYCHLOROQUINE SULFATE
     Dosage: 200 MG, 0 + 0 + 1 + 0, AFTER MEAL
  15. HYDROXYCHLOROQUINE SULFATE [Concomitant]
     Active Substance: HYDROXYCHLOROQUINE SULFATE
     Dosage: 400 MG, DAILY(INCREASE HCQ)
  16. HYDROXYCHLOROQUINE SULFATE [Concomitant]
     Active Substance: HYDROXYCHLOROQUINE SULFATE
     Dosage: 200 MG, 1 + 0 + 1 + 0, AFTER MEAL
  17. HYDROXYCHLOROQUINE SULFATE [Concomitant]
     Active Substance: HYDROXYCHLOROQUINE SULFATE
     Dosage: 200 MG,1 + 0 + 1 + 0, AFTER MEAL, 1+1 AFTER MEAL
  18. HYDROXYCHLOROQUINE SULFATE [Concomitant]
     Active Substance: HYDROXYCHLOROQUINE SULFATE
     Dosage: 200 MG, DAILY( 0+0+1+0, AFTER MEAL
  19. FOLIC ACID [Concomitant]
     Active Substance: FOLIC ACID
     Dosage: 5 MG, TAB. 1 X TABLETS, TWO TIMES A WEE(MON TUE)K
  20. FOLIC ACID [Concomitant]
     Active Substance: FOLIC ACID
     Dosage: 5 MG, 1X TABLETS, ONCE A DAY CONTINUE (OFF ON SATSUN)
  21. FOLIC ACID [Concomitant]
     Active Substance: FOLIC ACID
  22. FOLIC ACID [Concomitant]
     Active Substance: FOLIC ACID
     Dosage: 5 MG,1X TABLETS, ONCE A DAY CONTINUE (OFF ON SATSUN)
  23. FOLIC ACID [Concomitant]
     Active Substance: FOLIC ACID
     Dosage: 5 MG, 2X/WEEK
  24. Sunny d [Concomitant]
  25. CELBEXX [Concomitant]
     Dosage: 200 MG, DAILY(FOR 1 WEEK)
  26. CELBEXX [Concomitant]
     Dosage: 200MG (0 + 0 + 0 + 1), AFTER MEAL TAKE 1 CAPSULE IN NIGHT AFTER MEAL, AS PER NEED
  27. CELBEXX [Concomitant]
     Dosage: 200 MG, DAILY
  28. SYSTANE (HYPROMELLOSE 2910 (4000 MPA.S)) [Concomitant]
     Active Substance: HYPROMELLOSE 2910 (4000 MPA.S)
     Dosage: DROP 30, X APPLY LOCALLY, FOUR TIMES A DAY
     Route: 061
  29. FOLIC ACID [Concomitant]
     Active Substance: FOLIC ACID
     Dosage: 1 TABLETS, TWO TIMES A WEEK, MON TUE,TAKE 1 TABLET TWICE A WEEK
  30. FOLIC ACID [Concomitant]
     Active Substance: FOLIC ACID
     Dosage: 5 MG, 1X/DAY (OFF ON SAT SUN)
  31. ROVISTA [Concomitant]
     Dosage: 5 MG, 0 + 0 + 1 + 0, 1 TAB IN EVENING
  32. EVION [Concomitant]
     Active Substance: .ALPHA.-TOCOPHEROL ACETATE
     Dosage: 400 MG, 1 X CAPSULES, ONCE A DAY
  33. SULFASALAZINE [Concomitant]
     Active Substance: SULFASALAZINE
  34. OXYCLOR [Concomitant]
  35. DELTACORTRIL [Concomitant]
     Active Substance: PREDNISOLONE

REACTIONS (32)
  - Myocardial infarction [Unknown]
  - Myocardial ischaemia [Unknown]
  - Alanine aminotransferase increased [Recovering/Resolving]
  - Coronary artery disease [Unknown]
  - Arthralgia [Recovering/Resolving]
  - Aspartate aminotransferase increased [Unknown]
  - Dyslipidaemia [Unknown]
  - Blood pressure increased [Recovered/Resolved]
  - Hepatitis B surface antibody positive [Unknown]
  - Joint swelling [Recovering/Resolving]
  - Musculoskeletal stiffness [Recovering/Resolving]
  - Bilirubin urine [Recovering/Resolving]
  - Infection [Recovering/Resolving]
  - Rash [Recovering/Resolving]
  - Haemoglobin increased [Recovering/Resolving]
  - Abdominal pain upper [Unknown]
  - Diarrhoea [Unknown]
  - Pain [Unknown]
  - Low density lipoprotein increased [Recovering/Resolving]
  - Pain in extremity [Recovered/Resolved]
  - Peripheral swelling [Recovered/Resolved]
  - Chest discomfort [Unknown]
  - Hypertransaminasaemia [Unknown]
  - Hepatic steatosis [Unknown]
  - Gamma-glutamyltransferase increased [Unknown]
  - Alopecia areata [Unknown]
  - Condition aggravated [Unknown]
  - High density lipoprotein decreased [Unknown]
  - Cough [Unknown]
  - Tenderness [Unknown]
  - Swelling [Unknown]
  - Off label use [Unknown]

NARRATIVE: CASE EVENT DATE: 20210523
